FAERS Safety Report 4899884-2 (Version None)
Quarter: 2006Q1

REPORT INFORMATION
  Report Type: 
  Country: None (occurrence: None)
  Receive Date: 20060118
  Receipt Date: 20051017
  Transmission Date: 20060701
  Serious: No
  Sender: FDA-Public Use
  Company Number: 2005002021

PATIENT
  Age: 74 Year
  Sex: Female
  Weight: 55.3388 kg

DRUGS (10)
  1. TARCEVA [Suspect]
     Indication: NON-SMALL CELL LUNG CANCER
     Dosage: 150 MG (QD), ORAL
     Route: 048
     Dates: start: 20050715, end: 20051014
  2. ROFECOXIB [Concomitant]
  3. KEFLEX [Concomitant]
  4. ATENOLOL [Concomitant]
  5. LEVOXYL [Concomitant]
  6. OMEPRAZOLE [Concomitant]
  7. HYOSCAMINE [Concomitant]
  8. PERCOCET [Concomitant]
  9. GABAPENTIN [Concomitant]
  10. FLURAZIPAM (FLURAZEPAM) [Concomitant]

REACTIONS (12)
  - ALOPECIA [None]
  - ARTHRITIS [None]
  - DIARRHOEA [None]
  - DRY SKIN [None]
  - HAIR GROWTH ABNORMAL [None]
  - MALAISE [None]
  - NAIL INFECTION [None]
  - NAUSEA [None]
  - PAIN [None]
  - RASH [None]
  - TREMOR [None]
  - VISUAL DISTURBANCE [None]
